FAERS Safety Report 15327866 (Version 1)
Quarter: 2018Q3

REPORT INFORMATION
  Report Type: Spontaneous
  Country: US (occurrence: US)
  Receive Date: 20180828
  Receipt Date: 20180828
  Transmission Date: 20181010
  Serious: Yes (Other)
  Sender: FDA-Public Use
  Company Number: US-ROCHE-2014994

PATIENT
  Age: 33 Year
  Sex: Male

DRUGS (6)
  1. RIBAVIRIN. [Suspect]
     Active Substance: RIBAVIRIN
     Dosage: EVERY 8 HOURS
     Route: 042
  2. FAVIPIRAVIR [Suspect]
     Active Substance: FAVIPIRAVIR
     Indication: LASSA FEVER
     Dosage: ONCE
     Route: 065
  3. RIBAVIRIN. [Suspect]
     Active Substance: RIBAVIRIN
     Indication: LASSA FEVER
     Dosage: ONCE
     Route: 048
  4. FAVIPIRAVIR [Suspect]
     Active Substance: FAVIPIRAVIR
     Dosage: EVERY 12 HOURS
     Route: 065
  5. RIBAVIRIN. [Suspect]
     Active Substance: RIBAVIRIN
     Dosage: EVERY 6 HOURS
     Route: 042
  6. RIBAVIRIN. [Suspect]
     Active Substance: RIBAVIRIN
     Dosage: EVERY 8 HOURS
     Route: 048

REACTIONS (2)
  - Haemoglobin decreased [Unknown]
  - Transaminases increased [Unknown]
